FAERS Safety Report 19582737 (Version 1)
Quarter: 2021Q3

REPORT INFORMATION
  Report Type: Spontaneous
  Country: SE (occurrence: SE)
  Receive Date: 20210720
  Receipt Date: 20210720
  Transmission Date: 20211014
  Serious: Yes (Disabling, Other)
  Sender: FDA-Public Use
  Company Number: SE-PFIZER INC-00H-150-0090114-00

PATIENT
  Age: 70 Year
  Sex: Female
  Weight: 57 kg

DRUGS (2)
  1. EPINEPHRINE. [Concomitant]
     Active Substance: EPINEPHRINE
     Dosage: UNK
  2. BUPIVACAINE HCL [Suspect]
     Active Substance: BUPIVACAINE HYDROCHLORIDE
     Indication: EPIDURAL ANAESTHESIA
     Dosage: FREQ:  2 DAYS
     Route: 008
     Dates: start: 19950101

REACTIONS (3)
  - Cauda equina syndrome [Recovered/Resolved with Sequelae]
  - Urinary incontinence [Recovered/Resolved]
  - Anal incontinence [Recovered/Resolved with Sequelae]

NARRATIVE: CASE EVENT DATE: 19950101
